FAERS Safety Report 21048576 (Version 1)
Quarter: 2022Q3

REPORT INFORMATION
  Report Type: Spontaneous
  Country: US (occurrence: None)
  Receive Date: 20220705
  Receipt Date: 20220705
  Transmission Date: 20221027
  Serious: Yes (unspecified)
  Sender: FDA-Public Use
  Company Number: None

PATIENT
  Age: 24 Year
  Sex: Female
  Weight: 63 kg

DRUGS (1)
  1. OCREVUS [Suspect]
     Active Substance: OCRELIZUMAB
     Indication: Multiple sclerosis
     Dosage: OTHER FREQUENCY : EVER 6 MONTHS;?
     Route: 041
     Dates: start: 20190919

REACTIONS (4)
  - Oral pruritus [None]
  - Pruritus [None]
  - Erythema [None]
  - Infusion related reaction [None]

NARRATIVE: CASE EVENT DATE: 20220622
